FAERS Safety Report 14345123 (Version 3)
Quarter: 2018Q1

REPORT INFORMATION
  Report Type: Report from Study
  Country: ES (occurrence: ES)
  Receive Date: 20180103
  Receipt Date: 20180207
  Transmission Date: 20180509
  Serious: Yes (Hospitalization)
  Sender: FDA-Public Use
  Company Number: ES-ROCHE-2048133

PATIENT
  Age: 56 Year
  Sex: Male
  Weight: 104.3 kg

DRUGS (16)
  1. MACROGOL [Concomitant]
     Active Substance: POLYETHYLENE GLYCOLS
     Indication: CONSTIPATION
     Route: 048
  2. ATEZOLIZUMAB. [Suspect]
     Active Substance: ATEZOLIZUMAB
     Indication: NON-SMALL CELL LUNG CANCER
     Dosage: ON 13/DEC/2017, THE PATIENT RECEIVED MOST RECENT DOSE OF ATEZOLIZUMAB
     Route: 042
     Dates: start: 20171122
  3. FOLIC ACID. [Concomitant]
     Active Substance: FOLIC ACID
     Dosage: FOLIC ACID LACK
     Route: 048
     Dates: start: 201711, end: 20180117
  4. BROMAZEPAM [Concomitant]
     Active Substance: BROMAZEPAM
     Indication: ANXIETY
     Route: 048
  5. LACTULOSE. [Concomitant]
     Active Substance: LACTULOSE
     Indication: CONSTIPATION
     Route: 048
     Dates: start: 201711
  6. CYANOCOBALAMIN. [Concomitant]
     Active Substance: CYANOCOBALAMIN
     Dosage: B-12 VITAMIN LACK
     Route: 030
     Dates: start: 201711, end: 20180117
  7. LORAZEPAM. [Concomitant]
     Active Substance: LORAZEPAM
     Indication: INSOMNIA
     Route: 048
     Dates: start: 201711
  8. PARACETAMOL [Concomitant]
     Active Substance: ACETAMINOPHEN
     Indication: PYREXIA
     Route: 042
     Dates: start: 20171225, end: 20171228
  9. MORPHINE SULFATE. [Concomitant]
     Active Substance: MORPHINE SULFATE
     Dosage: SEVERE PAIN IN THE LUMBAR AREA OF THE COLUMN
     Route: 062
     Dates: start: 2017, end: 20180116
  10. PANTOPRAZOLE [Concomitant]
     Active Substance: PANTOPRAZOLE
     Indication: PROPHYLAXIS
     Route: 048
  11. METAMIZOLE [Concomitant]
     Active Substance: METAMIZOLE
     Dosage: SEVERE PAIN IN THE LUMBAR AREA OF THE COLUMN
     Route: 048
     Dates: start: 201711
  12. DEXKETOPROFEN [Concomitant]
     Active Substance: DEXKETOPROFEN
     Dosage: SEVERE PAIN IN THE LUMBAR AREA OF THE COLUMN
     Route: 048
     Dates: start: 201711
  13. METOCLOPRAMIDA [Concomitant]
     Active Substance: METOCLOPRAMIDE HYDROCHLORIDE
     Indication: NAUSEA
     Route: 042
     Dates: start: 20171225, end: 20171228
  14. MORPHINE SULFATE. [Concomitant]
     Active Substance: MORPHINE SULFATE
     Dosage: SEVERE PAIN IN THE LUMBAR AREA OF THE COLUMN
     Route: 062
     Dates: start: 20170117
  15. FENTANYL. [Concomitant]
     Active Substance: FENTANYL
     Dosage: SEVERE PAIN IN THE LUMBAR AREA OF THE COLUMN
     Route: 060
  16. DIAZEPAM. [Concomitant]
     Active Substance: DIAZEPAM
     Indication: SEIZURE
     Route: 042
     Dates: start: 20171225, end: 20171228

REACTIONS (1)
  - Vasogenic cerebral oedema [Recovered/Resolved]

NARRATIVE: CASE EVENT DATE: 20171225
